FAERS Safety Report 7363085-9 (Version None)
Quarter: 2011Q1

REPORT INFORMATION
  Report Type: 
  Country: None (occurrence: None)
  Receive Date: 20110321
  Receipt Date: 20110311
  Transmission Date: 20110831
  Serious: Yes (Other)
  Sender: FDA-Public Use
  Company Number: US-PFIZER INC-2006059435

PATIENT
  Sex: Female

DRUGS (3)
  1. NEURONTIN [Suspect]
     Dosage: 400 MG, 4X/DAY
     Route: 048
     Dates: start: 20010709
  2. NEURONTIN [Suspect]
     Dosage: 600 MG, UNK
     Dates: start: 20020708
  3. NEURONTIN [Suspect]
     Dosage: 400 MG, UNK
     Route: 065
     Dates: start: 20020601

REACTIONS (1)
  - SUICIDAL IDEATION [None]
